FAERS Safety Report 13782540 (Version 1)
Quarter: 2017Q3

REPORT INFORMATION
  Report Type: Spontaneous
  Country: US (occurrence: US)
  Receive Date: 20170724
  Receipt Date: 20170724
  Transmission Date: 20171127
  Serious: No
  Sender: FDA-Public Use
  Company Number: US-IPSEN BIOPHARMACEUTICALS, INC.-2016-07064

PATIENT
  Sex: Male
  Weight: 93 kg

DRUGS (4)
  1. INDAPAMIDE. [Concomitant]
     Active Substance: INDAPAMIDE
  2. FISH OIL [Concomitant]
     Active Substance: FISH OIL
  3. LIZINOPRIL [Concomitant]
  4. SOMATULINE [Suspect]
     Active Substance: LANREOTIDE ACETATE
     Indication: ACROMEGALY
     Dosage: 120 MG
     Route: 065

REACTIONS (2)
  - Inappropriate schedule of drug administration [Unknown]
  - Product distribution issue [Unknown]
